FAERS Safety Report 10223230 (Version 2)
Quarter: 2014Q2

REPORT INFORMATION
  Report Type: Spontaneous
  Country: US (occurrence: US)
  Receive Date: 20140609
  Receipt Date: 20140609
  Transmission Date: 20141212
  Serious: No
  Sender: FDA-Public Use
  Company Number: US-DRREDDYS-USA/USA/13/0029186

PATIENT
  Age: 42 Year
  Sex: Male

DRUGS (1)
  1. FEXOFENADINE HCL  OTC [Suspect]
     Indication: HYPERSENSITIVITY
     Route: 048
     Dates: start: 20130418, end: 20130419

REACTIONS (4)
  - Feeling hot [Unknown]
  - Drug ineffective [Unknown]
  - Expired product administered [Unknown]
  - Product quality issue [Unknown]
